FAERS Safety Report 26184370 (Version 1)
Quarter: 2025Q4

REPORT INFORMATION
  Report Type: Spontaneous
  Country: US (occurrence: US)
  Receive Date: 20251222
  Receipt Date: 20251222
  Transmission Date: 20260119
  Serious: No
  Sender: BIOCON
  Company Number: UN-MIMS-BCONMC-18690

PATIENT

DRUGS (1)
  1. YESINTEK [Suspect]
     Active Substance: USTEKINUMAB-KFCE
     Indication: Product used for unknown indication
     Dosage: 90 GRAM
     Route: 065

REACTIONS (6)
  - Abdominal discomfort [Unknown]
  - Chest pain [Unknown]
  - Neck pain [Unknown]
  - Disorientation [Unknown]
  - Vomiting [Unknown]
  - Headache [Unknown]
